FAERS Safety Report 9472217 (Version 2)
Quarter: 2013Q3

REPORT INFORMATION
  Report Type: Spontaneous
  Country: US (occurrence: US)
  Receive Date: 20130823
  Receipt Date: 20130830
  Transmission Date: 20140515
  Serious: Yes (Death, Hospitalization)
  Sender: FDA-Public Use
  Company Number: US-009507513-1308USA006007

PATIENT
  Age: 51 Year
  Sex: Female

DRUGS (1)
  1. TEMODAR [Suspect]
     Indication: BRAIN CANCER METASTATIC
     Dosage: UNK
     Route: 048
     Dates: start: 20120502

REACTIONS (2)
  - Death [Fatal]
  - Adverse event [Unknown]
